FAERS Safety Report 19210372 (Version 2)
Quarter: 2021Q2

REPORT INFORMATION
  Report Type: Spontaneous
  Country: HU (occurrence: HU)
  Receive Date: 20210504
  Receipt Date: 20210506
  Transmission Date: 20210717
  Serious: No
  Sender: FDA-Public Use
  Company Number: HU-JNJFOC-20210456193

PATIENT
  Sex: Female

DRUGS (3)
  1. DUROGESIC [Suspect]
     Active Substance: FENTANYL
     Indication: PRODUCT USED FOR UNKNOWN INDICATION
     Dosage: UNKNOWN
     Route: 062
  2. DUROGESIC [Suspect]
     Active Substance: FENTANYL
  3. DUROGESIC [Suspect]
     Active Substance: FENTANYL

REACTIONS (1)
  - Product adhesion issue [Unknown]
